FAERS Safety Report 18495538 (Version 1)
Quarter: 2020Q4

REPORT INFORMATION
  Report Type: Spontaneous
  Country: US (occurrence: US)
  Receive Date: 20201112
  Receipt Date: 20201112
  Transmission Date: 20210114
  Serious: No
  Sender: FDA-Public Use
  Company Number: None

PATIENT
  Age: 46 Year
  Sex: Female
  Weight: 85.5 kg

DRUGS (8)
  1. BUPRENORPHINE 8MG SUB HI- [Suspect]
     Active Substance: BUPRENORPHINE
     Indication: PAIN
     Dosage: ?          QUANTITY:1 TABLET(S);?
     Route: 060
     Dates: start: 20201110
  2. VENTOLIN [Concomitant]
     Active Substance: ALBUTEROL SULFATE
  3. SEROQUEL [Suspect]
     Active Substance: QUETIAPINE FUMARATE
  4. BREO ELLIPTA [Concomitant]
     Active Substance: FLUTICASONE FUROATE\VILANTEROL TRIFENATATE
  5. GOODIES POWDERS [Concomitant]
  6. DUONEB [Concomitant]
     Active Substance: ALBUTEROL SULFATE\IPRATROPIUM BROMIDE
  7. BUPRENORPHINE 8MG SUB HI- [Suspect]
     Active Substance: BUPRENORPHINE
     Indication: DRUG WITHDRAWAL SYNDROME
     Dosage: ?          QUANTITY:1 TABLET(S);?
     Route: 060
     Dates: start: 20201110
  8. BUPRENORPHINE. [Concomitant]
     Active Substance: BUPRENORPHINE

REACTIONS (6)
  - Drug ineffective [None]
  - Product substitution issue [None]
  - Incorrect dose administered by product [None]
  - Drug withdrawal syndrome [None]
  - Product complaint [None]
  - Manufacturing materials issue [None]

NARRATIVE: CASE EVENT DATE: 20201110
